FAERS Safety Report 4580409-6 (Version None)
Quarter: 2005Q1

REPORT INFORMATION
  Report Type: 
  Country: None (occurrence: None)
  Receive Date: 20050127
  Receipt Date: 20040830
  Transmission Date: 20050727
  Serious: No
  Sender: FDA-Public Use
  Company Number: USA040773487

PATIENT
  Age: 47 Year
  Sex: Female
  Weight: 91 kg

DRUGS (4)
  1. STRATTERA [Suspect]
     Indication: ATTENTION DEFICIT/HYPERACTIVITY DISORDER
     Dosage: 80 MG/L IN THE MORNING
     Dates: start: 20040620
  2. ADVIL [Concomitant]
  3. CENTRUM [Concomitant]
  4. KLONOPIN [Concomitant]

REACTIONS (3)
  - HEADACHE [None]
  - PALPITATIONS [None]
  - PSYCHOMOTOR HYPERACTIVITY [None]
